FAERS Safety Report 17783055 (Version 1)
Quarter: 2020Q2

REPORT INFORMATION
  Report Type: Spontaneous
  Country: FR (occurrence: FR)
  Receive Date: 20200514
  Receipt Date: 20200514
  Transmission Date: 20200714
  Serious: Yes (Hospitalization)
  Sender: FDA-Public Use
  Company Number: FR-TEVA-2020-FR-1234633

PATIENT
  Age: 12 Year
  Sex: Male
  Weight: 44 kg

DRUGS (13)
  1. DOXORUBICIN [Suspect]
     Active Substance: DOXORUBICIN
     Indication: EWING^S SARCOMA
     Dosage: 37.5MG/M2, 2 CURES
     Route: 042
     Dates: start: 20200107, end: 20200210
  2. EMEND [Concomitant]
     Active Substance: APREPITANT
     Dosage: SEE COMMENT
     Route: 048
  3. LARGACTIL 25 MG/5 ML, SOLUTION INJECTABLE EN AMPOULE [Concomitant]
     Active Substance: CHLORPROMAZINE HYDROCHLORIDE
     Dosage: SEE COMMENT
     Route: 042
  4. MESNA EG 100 MG/ML, SOLUTION INJECTABLE POUR PERFUSION [Concomitant]
     Active Substance: MESNA
     Dosage: SEE COMMENT
     Route: 042
  5. BACTRIM [Concomitant]
     Active Substance: SULFAMETHOXAZOLE\TRIMETHOPRIM
     Route: 048
  6. EMEND 80 MG, GELULE [Concomitant]
     Active Substance: APREPITANT
     Dosage: SEE COMMENT
     Route: 048
  7. CYCLOPHOSPHAMIDE. [Suspect]
     Active Substance: CYCLOPHOSPHAMIDE
     Indication: EWING^S SARCOMA
     Dosage: 1200MG/M2, 2 CURES
     Route: 042
     Dates: start: 20200107, end: 20200210
  8. GABAPENTINE [Concomitant]
     Active Substance: GABAPENTIN
     Route: 048
  9. IFOSFAMIDE. [Suspect]
     Active Substance: IFOSFAMIDE
     Dosage: 1800MG/M2, 2 CURE
     Route: 042
     Dates: start: 20200121, end: 20200228
  10. ETOPOSIDE. [Suspect]
     Active Substance: ETOPOSIDE
     Indication: EWING^S SARCOMA
     Dosage: 100MG, 2 CURES
     Route: 042
     Dates: start: 20200121, end: 20200228
  11. VINCRISTINE (SULFATE DE) [Suspect]
     Active Substance: VINCRISTINE SULFATE
     Indication: EWING^S SARCOMA
     Dosage: 1.5MG/M2, 2 CURES
     Route: 065
     Dates: start: 20200107, end: 20200110
  12. OMEPRAZOLE. [Concomitant]
     Active Substance: OMEPRAZOLE
     Route: 048
  13. ONDANSETRON [Concomitant]
     Active Substance: ONDANSETRON
     Dosage: SEE COMMENT
     Route: 048

REACTIONS (1)
  - Venoocclusive disease [Recovering/Resolving]

NARRATIVE: CASE EVENT DATE: 20200319
